FAERS Safety Report 8590528 (Version 11)
Quarter: 2013Q1

REPORT INFORMATION
  Report Type: Spontaneous
  Country: US (occurrence: US)
  Receive Date: 20120601
  Receipt Date: 20130319
  Transmission Date: 20140127
  Serious: Yes (Hospitalization)
  Sender: FDA-Public Use
  Company Number: US-ROXANE LABORATORIES, INC.-2012-RO-01315RO

PATIENT
  Age: 43 Year
  Sex: Female
  Weight: 95 kg

DRUGS (18)
  1. PREDNISONE [Suspect]
     Indication: UVEITIS
     Dosage: 60 MG
     Route: 048
     Dates: start: 20110729, end: 20120115
  2. PREDNISONE [Suspect]
     Dosage: 15 MG
     Route: 048
     Dates: start: 20120215, end: 20120314
  3. PREDNISONE [Suspect]
     Dosage: 10 MG
     Route: 048
     Dates: start: 20120315, end: 20120411
  4. PREDNISONE [Suspect]
     Dosage: 60 MG
     Route: 048
     Dates: start: 20120412, end: 20120425
  5. PREDNISONE [Suspect]
     Dosage: 50 MG
     Route: 048
     Dates: start: 20120426, end: 20120502
  6. HUMIRA [Suspect]
     Indication: UVEITIS
     Route: 058
     Dates: start: 20120412, end: 20120419
  7. HUMIRA [Suspect]
     Dosage: 60 MG
     Route: 058
     Dates: start: 20120508
  8. EPINEPHRINE [Concomitant]
     Indication: HYPERSENSITIVITY
     Route: 030
     Dates: start: 20110804
  9. HYDROCHLOROTHIAZIDE [Concomitant]
     Indication: HYPERTENSION
     Dosage: 12.5 MG
     Route: 048
     Dates: start: 20111103
  10. METOPROLOL SUCCINATE [Concomitant]
     Indication: HYPERTENSION
     Dosage: 100 MG
     Route: 048
     Dates: start: 20110729
  11. PREDNISOLONE ACETATE [Concomitant]
     Route: 061
     Dates: start: 2009
  12. TRIAMCINOLONE ACETONIDE [Concomitant]
     Route: 058
     Dates: start: 2009
  13. MYCOPHENOLATE MOFETIL [Concomitant]
     Indication: UVEITIS
     Dosage: 1 G
     Route: 048
     Dates: start: 201107, end: 201107
  14. AZATHIOPRINE [Concomitant]
     Indication: UVEITIS
     Dosage: 100 MG
     Route: 048
     Dates: start: 201108, end: 201108
  15. METHOTREXATE [Concomitant]
     Dosage: 15 MG
     Route: 048
     Dates: start: 20120215
  16. PRAMIPEXOLE [Concomitant]
     Indication: RESTLESS LEGS SYNDROME
     Dosage: 0.25 MG
     Route: 048
     Dates: start: 20120405
  17. VICOPROFEN [Concomitant]
     Indication: HEADACHE
     Route: 048
     Dates: start: 2012
  18. VICOPROFEN [Concomitant]
     Indication: FLANK PAIN

REACTIONS (4)
  - Pyelonephritis acute [Recovered/Resolved]
  - Sepsis [Recovered/Resolved]
  - Hypokalaemia [Unknown]
  - Diarrhoea [Unknown]
